FAERS Safety Report 10058090 (Version 1)
Quarter: 2014Q2

REPORT INFORMATION
  Report Type: Spontaneous
  Country: US (occurrence: US)
  Receive Date: 20140404
  Receipt Date: 20140404
  Transmission Date: 20141212
  Serious: No
  Sender: FDA-Public Use
  Company Number: US-PFIZER INC-2014094063

PATIENT
  Sex: Male

DRUGS (1)
  1. ADVIL [Suspect]
     Indication: MIGRAINE
     Dosage: 200 MG, UNK

REACTIONS (2)
  - Drug ineffective [Unknown]
  - Product quality issue [Unknown]
